FAERS Safety Report 16454682 (Version 1)
Quarter: 2019Q2

REPORT INFORMATION
  Report Type: Spontaneous
  Country: US (occurrence: US)
  Receive Date: 20190619
  Receipt Date: 20190619
  Transmission Date: 20190711
  Serious: No
  Sender: FDA-Public Use
  Company Number: US-ROCHE-2148504

PATIENT
  Sex: Female

DRUGS (3)
  1. ACTEMRA [Suspect]
     Active Substance: TOCILIZUMAB
     Indication: RHEUMATOID ARTHRITIS
  2. ACTEMRA [Suspect]
     Active Substance: TOCILIZUMAB
     Indication: THYROID CANCER
     Dosage: PRESENT
     Route: 058
     Dates: start: 20170922
  3. ACTEMRA [Suspect]
     Active Substance: TOCILIZUMAB
     Indication: ENDOCRINE NEOPLASM MALIGNANT

REACTIONS (5)
  - Swelling of eyelid [Unknown]
  - Ear neoplasm [Unknown]
  - Salivary gland neoplasm [Unknown]
  - Myalgia [Unknown]
  - Headache [Unknown]
